FAERS Safety Report 22356126 (Version 1)
Quarter: 2023Q2

REPORT INFORMATION
  Report Type: Spontaneous
  Country: US (occurrence: US)
  Receive Date: 20230523
  Receipt Date: 20230523
  Transmission Date: 20230722
  Serious: No
  Sender: FDA-Public Use
  Company Number: US-SA-SAC20230522000905

PATIENT
  Sex: Male

DRUGS (7)
  1. DUPIXENT [Suspect]
     Active Substance: DUPILUMAB
     Indication: Dermatitis atopic
     Dosage: 200 MG, QOW
     Route: 058
     Dates: start: 20220820
  2. ALBUTEROL SULFATE [Concomitant]
     Active Substance: ALBUTEROL SULFATE
  3. DESONIDE [Concomitant]
     Active Substance: DESONIDE
  4. FLUOCINONIDE [Concomitant]
     Active Substance: FLUOCINONIDE
  5. PREDNISONE [Concomitant]
     Active Substance: PREDNISONE
  6. BETAMET [BETAMETHASONE VALERATE] [Concomitant]
  7. TRIAMCINOLONE [Concomitant]
     Active Substance: TRIAMCINOLONE

REACTIONS (1)
  - Condition aggravated [Unknown]
